FAERS Safety Report 8010096-6 (Version None)
Quarter: 2011Q4

REPORT INFORMATION
  Report Type: 
  Country: None (occurrence: None)
  Receive Date: 20111228
  Receipt Date: 20111223
  Transmission Date: 20120403
  Serious: Yes (Death, Hospitalization, Other)
  Sender: FDA-Public Use
  Company Number: SE-BRISTOL-MYERS SQUIBB COMPANY-15878796

PATIENT
  Age: 60 Year
  Sex: Male

DRUGS (17)
  1. BLINDED: SAXAGLIPTIN [Suspect]
     Indication: TYPE 2 DIABETES MELLITUS
     Dosage: INTERRUPTED ON 11JUL2011 AND STOPPED ON 11JUL2011
     Dates: start: 20110414
  2. NOVORAPID [Suspect]
     Indication: DIABETES MELLITUS
     Dates: start: 20110711, end: 20110719
  3. CLOPIDOGREL BISULFATE [Suspect]
  4. LACTULOSE [Suspect]
     Dates: start: 20110720, end: 20110725
  5. IMPORTAL [Concomitant]
     Dates: start: 20110726
  6. OXYCONTIN [Concomitant]
     Dates: start: 20110711
  7. METFORMIN HCL [Suspect]
     Indication: TYPE 2 DIABETES MELLITUS
     Dates: end: 20110711
  8. ASPIRIN [Suspect]
     Dosage: 1DF={100MG
     Dates: end: 20110722
  9. DALTEPARIN SODIUM [Suspect]
     Dosage: 1 DOSAGE FORM = 1500 UNITS
     Dates: start: 20110711
  10. CILAXORAL [Suspect]
     Dates: start: 20110712, end: 20110725
  11. FUROSEMIDE [Concomitant]
     Dates: start: 20110711
  12. CILAXORAL [Concomitant]
     Dates: start: 20110712, end: 20110725
  13. ASPIRIN [Concomitant]
  14. INSULATARD NPH HUMAN [Suspect]
     Indication: DIABETES MELLITUS
     Dates: start: 20110718
  15. BLINDED: PLACEBO [Suspect]
     Indication: TYPE 2 DIABETES MELLITUS
     Dosage: INTERRUPTED ON 11JUL2011
     Dates: start: 20110414
  16. OMEPRAZOLE [Concomitant]
     Dates: start: 20110716
  17. SPIRONOLACTONE [Concomitant]
     Dates: start: 20110713

REACTIONS (9)
  - PULMONARY EMBOLISM [None]
  - HAEMATURIA [None]
  - INGUINAL HERNIA [None]
  - PORTAL VEIN THROMBOSIS [None]
  - CONSTIPATION [None]
  - SUDDEN CARDIAC DEATH [None]
  - ASCITES [None]
  - PANCREATITIS ACUTE [None]
  - NAUSEA [None]
